FAERS Safety Report 20697053 (Version 6)
Quarter: 2022Q4

REPORT INFORMATION
  Report Type: Spontaneous
  Country: US (occurrence: US)
  Receive Date: 20220411
  Receipt Date: 20221229
  Transmission Date: 20230113
  Serious: Yes (Other)
  Sender: FDA-Public Use
  Company Number: US-PFIZER INC-202200500657

PATIENT
  Age: 62 Year
  Sex: Female
  Weight: 129.27 kg

DRUGS (4)
  1. XELJANZ XR [Suspect]
     Active Substance: TOFACITINIB CITRATE
     Indication: Rheumatoid arthritis
     Dosage: 11 MG, 1X/DAY
  2. OXYCODONE [Suspect]
     Active Substance: OXYCODONE
     Dosage: UNK
  3. IBUPROFEN [Concomitant]
     Active Substance: IBUPROFEN
     Indication: Pain
     Dosage: 200 MG (FOUR TABLETS EVERY 4-6 HOURS)
  4. FOLIC ACID [Concomitant]
     Active Substance: FOLIC ACID
     Dosage: 1 DF, 1X/DAY (1 TABLET BY MOUTH EVERY DAY)
     Route: 048

REACTIONS (8)
  - Hip surgery [Unknown]
  - Stomatitis [Not Recovered/Not Resolved]
  - Throat lesion [Unknown]
  - Skin lesion [Unknown]
  - Nasopharyngitis [Unknown]
  - Oropharyngeal pain [Unknown]
  - Cough [Unknown]
  - Nasal congestion [Unknown]

NARRATIVE: CASE EVENT DATE: 20211001
